FAERS Safety Report 5816260-6 (Version None)
Quarter: 2008Q3

REPORT INFORMATION
  Report Type: 
  Country: None (occurrence: None)
  Receive Date: 20080721
  Receipt Date: 20080714
  Transmission Date: 20090109
  Serious: Yes (Hospitalization)
  Sender: FDA-Public Use
  Company Number: US-BRISTOL-MYERS SQUIBB COMPANY-14261788

PATIENT
  Age: 58 Year
  Sex: Male
  Weight: 102 kg

DRUGS (3)
  1. ERBITUX [Suspect]
     Indication: PHARYNGEAL CANCER STAGE UNSPECIFIED
     Dosage: START DATE OF FIRST COURSE 23JUN08. WEEK0-800MG, 23JUN08 LOADING DOSE, WEEK1-500MG
     Dates: start: 20080630, end: 20080630
  2. CISPLATIN [Suspect]
     Indication: PHARYNGEAL CANCER STAGE UNSPECIFIED
     Dosage: START DATE OF FIRST COURSE 23JUN08. COURSE ADDOCIATED WITH EXPEDITED REPORT 23JUN08
     Dates: start: 20080630, end: 20080630
  3. RADIATION THERAPY [Suspect]
     Indication: PHARYNGEAL CANCER STAGE UNSPECIFIED
     Dosage: 1 DOSAGEFORM = 10 GY. NUMBER OF FRACTIONS 35. NUMBER OF ELASPSED DAYS 4.
     Dates: start: 20080630, end: 20080630

REACTIONS (3)
  - DEHYDRATION [None]
  - NAUSEA [None]
  - SYNCOPE VASOVAGAL [None]
